FAERS Safety Report 14958506 (Version 6)
Quarter: 2024Q1

REPORT INFORMATION
  Report Type: Report from Study
  Country: DE (occurrence: DE)
  Receive Date: 20180531
  Receipt Date: 20240212
  Transmission Date: 20240410
  Serious: Yes (Life-Threatening, Other)
  Sender: FDA-Public Use
  Company Number: DE-STADA-162798

PATIENT
  Age: 18 Year
  Sex: Female

DRUGS (9)
  1. CELECOXIB [Suspect]
     Active Substance: CELECOXIB
     Indication: Ewing^s sarcoma
     Dosage: 200 MILLIGRAM
     Route: 048
  2. EPIRUBICIN [Suspect]
     Active Substance: EPIRUBICIN
     Indication: Ewing^s sarcoma
     Dosage: 100 MILLIGRAM/SQ. METER
     Route: 042
  3. EPIRUBICIN [Suspect]
     Active Substance: EPIRUBICIN
     Dosage: 100 MG/M2, UNK
     Route: 042
  4. EPIRUBICIN [Suspect]
     Active Substance: EPIRUBICIN
     Dosage: FULL DOSE AFTER THE END OF RADIOTHERAPY
     Route: 065
  5. IMATINIB [Suspect]
     Active Substance: IMATINIB
     Indication: Ewing^s sarcoma
     Dosage: 400 MG, UNK
     Route: 048
  6. IMATINIB [Suspect]
     Active Substance: IMATINIB
     Dosage: 200 MILLIGRAM
     Route: 048
  7. IMATINIB [Suspect]
     Active Substance: IMATINIB
     Dosage: FULL DOSE AFTER THE END OF RADIOTHERAPY, UNK
     Route: 065
  8. DASATINIB [Suspect]
     Active Substance: DASATINIB
     Indication: Ewing^s sarcoma
     Dosage: 100 MG, UNK
     Route: 048
  9. DASATINIB [Suspect]
     Active Substance: DASATINIB
     Dosage: UNK
     Route: 065

REACTIONS (13)
  - Metastases to bone [Unknown]
  - Thrombocytopenia [Unknown]
  - Nausea [Unknown]
  - Vomiting [Unknown]
  - Neutropenia [Unknown]
  - Anaemia [Unknown]
  - Lymphopenia [Unknown]
  - Metastasis [Unknown]
  - Malignant neoplasm progression [Unknown]
  - Anxiety [Unknown]
  - Depression [Unknown]
  - Product use in unapproved indication [Unknown]
  - Toxicity to various agents [Unknown]
